FAERS Safety Report 16930706 (Version 1)
Quarter: 2019Q4

REPORT INFORMATION
  Report Type: Spontaneous
  Country: GB (occurrence: GB)
  Receive Date: 20191017
  Receipt Date: 20191017
  Transmission Date: 20200122
  Serious: Yes (Hospitalization)
  Sender: FDA-Public Use
  Company Number: GB-MYLANLABS-2019M1097450

PATIENT
  Sex: Male

DRUGS (2)
  1. ZAPONEX [Suspect]
     Active Substance: CLOZAPINE
     Indication: PRODUCT USED FOR UNKNOWN INDICATION
     Dosage: 200 MILLIGRAM
     Route: 048
     Dates: start: 20190814, end: 20190814
  2. VENLAFAXINE [Suspect]
     Active Substance: VENLAFAXINE HYDROCHLORIDE
     Indication: PRODUCT USED FOR UNKNOWN INDICATION
     Dosage: UNK

REACTIONS (3)
  - Sedation [Not Recovered/Not Resolved]
  - Wrong patient received product [Not Recovered/Not Resolved]
  - Accidental overdose [Not Recovered/Not Resolved]

NARRATIVE: CASE EVENT DATE: 20190814
